FAERS Safety Report 9948384 (Version 2)
Quarter: 2014Q1

REPORT INFORMATION
  Report Type: Report from Study
  Country: US (occurrence: US)
  Receive Date: 20140303
  Receipt Date: 20140303
  Transmission Date: 20141002
  Serious: Yes (Hospitalization)
  Sender: FDA-Public Use
  Company Number: US-ABBVIE-13P-163-1055643-00

PATIENT
  Age: 59 Year
  Sex: Male
  Weight: 102.6 kg

DRUGS (6)
  1. HUMIRA [Suspect]
     Indication: COLITIS ULCERATIVE
     Dates: start: 201206, end: 201302
  2. UNNAMED MEDICATION [Concomitant]
     Indication: HYPERTENSION
  3. UNNAMED MEDICATION [Concomitant]
     Indication: DIABETES MELLITUS
  4. UNNAMED MEDICATION [Concomitant]
     Indication: CARDIAC DISORDER
  5. UNNAMED MEDICATION [Concomitant]
     Indication: CHRONIC OBSTRUCTIVE PULMONARY DISEASE
  6. UNNAMED MEDICATION [Concomitant]
     Indication: CARDIAC FAILURE CONGESTIVE

REACTIONS (4)
  - Abdominal pain [Not Recovered/Not Resolved]
  - Frequent bowel movements [Not Recovered/Not Resolved]
  - Diarrhoea [Not Recovered/Not Resolved]
  - Colitis ulcerative [Not Recovered/Not Resolved]
